FAERS Safety Report 10667495 (Version 1)
Quarter: 2014Q4

REPORT INFORMATION
  Report Type: Report from Study
  Country: ZA (occurrence: ZA)
  Receive Date: 20141222
  Receipt Date: 20141222
  Transmission Date: 20150529
  Serious: Yes (Death, Hospitalization, Other)
  Sender: FDA-Public Use
  Company Number: PHHY2014ZA165591

PATIENT
  Age: 59 Year
  Sex: Female

DRUGS (4)
  1. EFAVIRENZ [Concomitant]
     Active Substance: EFAVIRENZ
     Indication: HIV INFECTION
     Route: 065
     Dates: start: 201308
  2. TENOFOVIR [Concomitant]
     Active Substance: TENOFOVIR
     Indication: HIV INFECTION
     Route: 065
     Dates: start: 201308
  3. LAMIVUDINE. [Concomitant]
     Active Substance: LAMIVUDINE
     Indication: HIV INFECTION
     Route: 065
     Dates: start: 201308
  4. GLIVEC [Suspect]
     Active Substance: IMATINIB MESYLATE
     Indication: CHRONIC MYELOID LEUKAEMIA
     Dosage: 400 MG, QD
     Route: 065
     Dates: start: 201308

REACTIONS (9)
  - Renal failure [Fatal]
  - Sepsis [Unknown]
  - Acute hepatic failure [Fatal]
  - Hepatosplenomegaly [Unknown]
  - Coagulopathy [Unknown]
  - Encephalopathy [Unknown]
  - Tuberculosis [Unknown]
  - Renal impairment [Fatal]
  - Cholestasis [Unknown]

NARRATIVE: CASE EVENT DATE: 201410
